FAERS Safety Report 9475699 (Version 2)
Quarter: 2013Q4

REPORT INFORMATION
  Report Type: Spontaneous
  Country: NL (occurrence: NL)
  Receive Date: 20130826
  Receipt Date: 20131106
  Transmission Date: 20140711
  Serious: Yes (Death)
  Sender: FDA-Public Use
  Company Number: PHHY2013NL091884

PATIENT
  Sex: Female
  Weight: 53 kg

DRUGS (8)
  1. AFINITOR [Suspect]
     Indication: BREAST CANCER
     Dosage: 5 MG, DAILY
     Route: 048
     Dates: start: 20130310, end: 20130718
  2. EXEMESTANE [Concomitant]
     Dosage: 25 MG, QD
  3. CIPROXIN [Concomitant]
     Dosage: 250 MG, BID
  4. TRIMETHOPRIM [Concomitant]
     Dosage: 100 MG, QD
  5. MAGNESIUM OXIDE [Concomitant]
     Dosage: 500 MG, PRN
  6. PANTOZOL [Concomitant]
  7. PARACETAMOL [Concomitant]
  8. MORPHINE [Concomitant]

REACTIONS (2)
  - Hypovolaemic shock [Fatal]
  - Gastrointestinal haemorrhage [Fatal]
